FAERS Safety Report 6984843 (Version 2)
Quarter: 2014Q3

REPORT INFORMATION
  Report Type: Spontaneous
  Country: US (occurrence: US)
  Receive Date: 20090501
  Receipt Date: 20140923
  Transmission Date: 20150326
  Serious: Yes (Hospitalization, Other)
  Sender: FDA-Public Use
  Company Number: US-ALEXION-A200800272

PATIENT
  Age: 29 Year
  Sex: Female

DRUGS (7)
  1. SOLIRIS [Suspect]
     Active Substance: ECULIZUMAB
     Dosage: 900 MG, Q10D
     Route: 042
     Dates: start: 20081111, end: 20081121
  2. SOLIRIS [Suspect]
     Active Substance: ECULIZUMAB
     Dosage: 900 MG, Q12D
     Route: 042
     Dates: start: 20081121
  3. XANAX [Concomitant]
     Active Substance: ALPRAZOLAM
  4. SOLIRIS [Suspect]
     Active Substance: ECULIZUMAB
     Indication: PAROXYSMAL NOCTURNAL HAEMOGLOBINURIA
     Dosage: 600 MG, QW
     Route: 042
  5. SOLIRIS [Suspect]
     Active Substance: ECULIZUMAB
     Dosage: 900 MG, Q2WKS
     Route: 042
     Dates: start: 20081028, end: 20081111
  6. HYDROQUINONE. [Concomitant]
     Active Substance: HYDROQUINONE
  7. ARIXTRA [Concomitant]
     Active Substance: FONDAPARINUX SODIUM
     Indication: PULMONARY EMBOLISM
     Dosage: 10 MG, QD

REACTIONS (7)
  - Haemolysis [Recovered/Resolved]
  - Hordeolum [Unknown]
  - Muscle spasms [Recovering/Resolving]
  - Haemoglobin decreased [Recovered/Resolved]
  - Arthralgia [Recovering/Resolving]
  - Contusion [Unknown]
  - Pancreatitis acute [Recovering/Resolving]

NARRATIVE: CASE EVENT DATE: 2008
